FAERS Safety Report 11041651 (Version 1)
Quarter: 2015Q2

REPORT INFORMATION
  Report Type: Report from Study
  Country: US (occurrence: US)
  Receive Date: 20150416
  Receipt Date: 20150416
  Transmission Date: 20150821
  Serious: Yes (Other)
  Sender: FDA-Public Use
  Company Number: US-SA-2014SA115267

PATIENT
  Age: 35 Year
  Sex: Female

DRUGS (3)
  1. AUBAGIO [Suspect]
     Active Substance: TERIFLUNOMIDE
     Indication: MULTIPLE SCLEROSIS
     Route: 048
  2. AUBAGIO [Suspect]
     Active Substance: TERIFLUNOMIDE
     Indication: MULTIPLE SCLEROSIS
     Route: 048
     Dates: start: 20140730
  3. AUBAGIO [Suspect]
     Active Substance: TERIFLUNOMIDE
     Indication: MULTIPLE SCLEROSIS
     Route: 048
     Dates: start: 20140818

REACTIONS (28)
  - Feeling abnormal [Unknown]
  - Fatigue [Unknown]
  - Urinary incontinence [Unknown]
  - Discomfort [Unknown]
  - Gait disturbance [Unknown]
  - Psoriasis [Unknown]
  - Tremor [Unknown]
  - Asthenia [Unknown]
  - Limb discomfort [Unknown]
  - Dysgraphia [Unknown]
  - Back pain [Unknown]
  - Restless legs syndrome [Recovering/Resolving]
  - Muscle spasms [Unknown]
  - Weight increased [Unknown]
  - Hypoaesthesia [Unknown]
  - Walking aid user [Unknown]
  - Muscular weakness [Unknown]
  - Balance disorder [Not Recovered/Not Resolved]
  - Dizziness [Unknown]
  - Nervousness [Recovering/Resolving]
  - Somnolence [Unknown]
  - Joint crepitation [Unknown]
  - Fall [Unknown]
  - Coccydynia [Unknown]
  - Skin lesion [Unknown]
  - Dry skin [Unknown]
  - Dysstasia [Unknown]
  - Mass [Unknown]

NARRATIVE: CASE EVENT DATE: 201504
